FAERS Safety Report 24565332 (Version 2)
Quarter: 2024Q4

REPORT INFORMATION
  Report Type: Report from Study
  Country: DE (occurrence: DE)
  Receive Date: 20241030
  Receipt Date: 20241101
  Transmission Date: 20250115
  Serious: Yes (Death)
  Sender: ABBVIE
  Company Number: DE-ABBVIE-5983709

PATIENT
  Age: 78 Year
  Sex: Male

DRUGS (1)
  1. FOSCARBIDOPA\FOSLEVODOPA [Suspect]
     Active Substance: FOSCARBIDOPA\FOSLEVODOPA
     Indication: Parkinson^s disease
     Dosage: SD: 0,60 ML, CRN: 0,26 ML/H, CR: 0,33 ML/H CRH: 0,39 ML/H, ED: 0,15 ML
     Route: 058
     Dates: start: 20241014, end: 20241025

REACTIONS (2)
  - Pneumonia [Fatal]
  - Parkinson^s disease [Unknown]

NARRATIVE: CASE EVENT DATE: 20241001
